FAERS Safety Report 8462168 (Version 3)
Quarter: 2012Q4

REPORT INFORMATION
  Report Type: Report from Study
  Country: JP (occurrence: JP)
  Receive Date: 20120315
  Receipt Date: 20121129
  Transmission Date: 20130627
  Serious: Yes (Other)
  Sender: FDA-Public Use
  Company Number: JP-GILEAD-2012-0052198

PATIENT
  Age: 53 Year
  Sex: Female

DRUGS (8)
  1. AMBRISENTAN [Suspect]
     Indication: PULMONARY ARTERIAL HYPERTENSION
     Dosage: 5 mg, QD
     Route: 048
     Dates: start: 20111109, end: 20120202
  2. WARFARIN [Suspect]
     Indication: PROPHYLAXIS
     Route: 048
     Dates: start: 20060731
  3. PROCYLIN [Suspect]
     Route: 048
     Dates: start: 20070717
  4. FUROSEMIDE [Concomitant]
     Indication: PULMONARY HYPERTENSION
     Route: 065
  5. FUROSEMIDE [Concomitant]
     Route: 048
     Dates: start: 20070717
  6. ALDACTONE A [Concomitant]
     Indication: PULMONARY HYPERTENSION
     Route: 048
     Dates: start: 20070717
  7. URINORM [Concomitant]
     Indication: HYPERURICAEMIA
     Route: 048
     Dates: start: 20111012
  8. URINORM [Concomitant]
     Indication: PULMONARY HYPERTENSION

REACTIONS (2)
  - Haemoptysis [Unknown]
  - Anaemia [Not Recovered/Not Resolved]
